FAERS Safety Report 10996505 (Version 2)
Quarter: 2015Q3

REPORT INFORMATION
  Report Type: Spontaneous
  Country: JP (occurrence: JP)
  Receive Date: 20150408
  Receipt Date: 20150722
  Transmission Date: 20151125
  Serious: Yes (Other)
  Sender: FDA-Public Use
  Company Number: JP-ROCHE-1561128

PATIENT
  Age: 47 Year
  Sex: Male
  Weight: 70 kg

DRUGS (27)
  1. PEGINTRON [Suspect]
     Active Substance: PEGINTERFERON ALFA-2B
     Route: 058
     Dates: start: 20140415
  2. DOGMATYL [Concomitant]
     Active Substance: SULPIRIDE
     Route: 048
     Dates: start: 20140325
  3. REBETOL [Suspect]
     Active Substance: RIBAVIRIN
     Indication: CHRONIC HEPATITIS C
     Route: 048
     Dates: start: 20140325
  4. ASCATE [Concomitant]
     Route: 048
     Dates: start: 20140516
  5. COPEGUS [Suspect]
     Active Substance: RIBAVIRIN
     Route: 048
     Dates: start: 20140304
  6. REBETOL [Suspect]
     Active Substance: RIBAVIRIN
     Route: 048
     Dates: start: 20140530
  7. NORVASC [Concomitant]
     Active Substance: AMLODIPINE BESYLATE
     Route: 048
     Dates: start: 20131105
  8. CLARITH [Concomitant]
     Active Substance: CLARITHROMYCIN
     Route: 048
     Dates: start: 20140408
  9. PEGASYS [Suspect]
     Active Substance: PEGINTERFERON ALFA-2A
     Indication: CHRONIC HEPATITIS C
     Route: 058
     Dates: start: 20140218
  10. PEGASYS [Suspect]
     Active Substance: PEGINTERFERON ALFA-2A
     Route: 058
     Dates: start: 20140304
  11. SOVRIAD [Suspect]
     Active Substance: SIMEPREVIR
     Indication: CHRONIC HEPATITIS C
     Route: 048
     Dates: start: 20140218, end: 20140310
  12. SOVRIAD [Suspect]
     Active Substance: SIMEPREVIR
     Route: 048
     Dates: start: 20140530
  13. HALCION [Concomitant]
     Active Substance: TRIAZOLAM
     Indication: INSOMNIA
     Route: 048
     Dates: start: 20120204
  14. PEGINTRON [Suspect]
     Active Substance: PEGINTERFERON ALFA-2B
     Route: 058
     Dates: start: 20140530
  15. PARIET [Concomitant]
     Active Substance: RABEPRAZOLE SODIUM
     Route: 048
     Dates: start: 20140408
  16. BLOPRESS [Concomitant]
     Active Substance: CANDESARTAN CILEXETIL
     Route: 048
     Dates: start: 20140422
  17. PEGINTRON [Suspect]
     Active Substance: PEGINTERFERON ALFA-2B
     Indication: CHRONIC HEPATITIS C
     Route: 058
     Dates: start: 20140325
  18. BLOPRESS [Concomitant]
     Active Substance: CANDESARTAN CILEXETIL
     Route: 048
     Dates: start: 20140415
  19. URSO [Concomitant]
     Active Substance: URSODIOL
     Route: 048
     Dates: start: 20131008
  20. GLYCYRON [Concomitant]
     Active Substance: AMMONIUM GLYCYRRHIZATE\GLYCINE\METHIONINE
     Dosage: 3 DOSES
     Route: 048
     Dates: start: 20131008
  21. COPEGUS [Suspect]
     Active Substance: RIBAVIRIN
     Indication: CHRONIC HEPATITIS C
     Route: 048
     Dates: start: 20140218
  22. SAWACILLIN [Concomitant]
     Active Substance: AMOXICILLIN
     Route: 048
     Dates: start: 20140408
  23. SOVRIAD [Suspect]
     Active Substance: SIMEPREVIR
     Route: 048
     Dates: start: 20140325
  24. SOVRIAD [Suspect]
     Active Substance: SIMEPREVIR
     Route: 048
     Dates: start: 20140415
  25. REBETOL [Suspect]
     Active Substance: RIBAVIRIN
     Route: 048
     Dates: start: 20140415
  26. REBETOL [Suspect]
     Active Substance: RIBAVIRIN
     Route: 048
     Dates: start: 20140516
  27. CELECOXIB. [Concomitant]
     Active Substance: CELECOXIB
     Route: 048
     Dates: start: 20131008

REACTIONS (3)
  - Platelet count decreased [Recovered/Resolved]
  - Helicobacter gastritis [Unknown]
  - White blood cell count decreased [Recovered/Resolved]

NARRATIVE: CASE EVENT DATE: 20140225
